FAERS Safety Report 9424114 (Version 3)
Quarter: 2014Q1

REPORT INFORMATION
  Report Type: Spontaneous
  Country: US (occurrence: US)
  Receive Date: 20130729
  Receipt Date: 20140312
  Transmission Date: 20141002
  Serious: Yes (Other)
  Sender: FDA-Public Use
  Company Number: PHEH2013US015278

PATIENT
  Age: 58 Year
  Sex: Male

DRUGS (14)
  1. MYFORTIC [Suspect]
     Indication: RENAL TRANSPLANT
     Dosage: 360 MG, BID
  2. RAPAMUNE [Concomitant]
     Dosage: 2 MG, QD
  3. PREDNISONE [Concomitant]
     Dosage: 5 MG, QD
  4. MICARDIS [Concomitant]
     Dosage: 80 MG, QD
  5. MINOXIDIL [Concomitant]
     Dosage: 2.5 MG, BID
  6. COREG [Concomitant]
     Dosage: 12.5 MG, BID
  7. SYNTHROID [Concomitant]
     Dosage: UNK UKN, QD
  8. CRESTOR [Concomitant]
     Dosage: 5 MG, QD
  9. CALCITRIOL [Concomitant]
     Dosage: 0.25 MCG, UNK
  10. BABY ASPIRIN [Concomitant]
     Dosage: 81 MG, QD
  11. VIT D [Concomitant]
     Dosage: 400 MG, QD
  12. MULTI-VIT [Concomitant]
     Dosage: UNK UKN, QD
  13. FISH OIL [Concomitant]
     Dosage: UNK UKN, BID
  14. CALCIUM [Concomitant]
     Dosage: 450 MG, BID

REACTIONS (2)
  - Nephropathy [Not Recovered/Not Resolved]
  - Blood creatinine increased [Not Recovered/Not Resolved]
